FAERS Safety Report 8614058-7 (Version None)
Quarter: 2012Q3

REPORT INFORMATION
  Report Type: 
  Country: None (occurrence: None)
  Receive Date: 20120813
  Receipt Date: 20120813
  Transmission Date: 20120928
  Serious: Yes (Hospitalization)
  Sender: FDA-Public Use
  Company Number: None

PATIENT

DRUGS (2)
  1. CARBOPLATIN [Suspect]
     Dosage: 812 MG
     Dates: end: 20120710
  2. FLUOROURACIL [Suspect]
     Dosage: 7160 MG
     Dates: end: 20120714

REACTIONS (7)
  - HAEMORRHAGE [None]
  - THROMBOSIS [None]
  - ULCER HAEMORRHAGE [None]
  - ANAEMIA [None]
  - THROMBOCYTOPENIA [None]
  - PNEUMONIA [None]
  - PROCEDURAL SITE REACTION [None]
